FAERS Safety Report 7008744-2 (Version None)
Quarter: 2010Q3

REPORT INFORMATION
  Report Type: 
  Country: None (occurrence: None)
  Receive Date: 20100921
  Receipt Date: 20100907
  Transmission Date: 20110219
  Serious: Yes (Hospitalization)
  Sender: FDA-Public Use
  Company Number: B0675148A

PATIENT
  Age: 19 Year
  Sex: Female

DRUGS (4)
  1. ALBUTEROL SULFATE [Suspect]
  2. ADEKS (FORMULATION UNKNOWN) (ADEKS) [Suspect]
  3. PANCREATIC ENZYME (FORMULATION UNKNOWN) (PANCREATIC ENZYME) [Suspect]
  4. ANTIBIOTICS [Concomitant]

REACTIONS (6)
  - ANTINUCLEAR ANTIBODY INCREASED [None]
  - AUTOIMMUNE HEPATITIS [None]
  - BLOOD IMMUNOGLOBULIN G INCREASED [None]
  - DECREASED APPETITE [None]
  - HEPATIC FIBROSIS [None]
  - LUNG INFECTION [None]
